FAERS Safety Report 10139735 (Version 7)
Quarter: 2022Q4

REPORT INFORMATION
  Report Type: Report from Study
  Country: BR (occurrence: BR)
  Receive Date: 20140429
  Receipt Date: 20221012
  Transmission Date: 20230112
  Serious: Yes (Death, Life-Threatening, Hospitalization, Other)
  Sender: FDA-Public Use
  Company Number: BR-SHIRE-BR201401513

PATIENT
  Age: 16 Year
  Sex: Male

DRUGS (13)
  1. IDURSULFASE [Suspect]
     Active Substance: IDURSULFASE
     Indication: Mucopolysaccharidosis II
     Dosage: 0.5 MG/KG, 1X/WEEK
     Route: 041
     Dates: start: 20040128, end: 201404
  2. CARBAMAZEPINE [Concomitant]
     Active Substance: CARBAMAZEPINE
     Indication: Nervous system disorder
     Dosage: 5 MILLILITER, BID
     Route: 048
     Dates: start: 20090805
  3. CAPTOPRIL [Concomitant]
     Active Substance: CAPTOPRIL
     Indication: Cardiovascular disorder
     Dosage: 12.5 MILLIGRAM, BID
     Route: 048
     Dates: start: 200306
  4. MELATONIN [Concomitant]
     Active Substance: MELATONIN
     Indication: Sleep disorder
     Dosage: UNK
     Route: 048
  5. PENICILLIN [Concomitant]
     Active Substance: PENICILLIN
     Indication: Antibiotic therapy
     Dosage: UNK
     Route: 042
     Dates: start: 201006, end: 201006
  6. AMOXICILLIN [Concomitant]
     Active Substance: AMOXICILLIN
     Indication: Antibiotic therapy
     Dosage: UNK
     Route: 042
     Dates: start: 201006, end: 201006
  7. METHYLPREDNISOLONE [Concomitant]
     Active Substance: METHYLPREDNISOLONE
     Indication: Glucocorticoids abnormal
     Dosage: UNK
     Route: 042
     Dates: start: 20120109
  8. AMOXICILLIN\CLAVULANATE POTASSIUM [Concomitant]
     Active Substance: AMOXICILLIN\CLAVULANATE POTASSIUM
     Indication: Infection
     Dosage: UNK
     Route: 048
     Dates: start: 20130109, end: 20130121
  9. DIPYRONE [Concomitant]
     Active Substance: DIPYRONE
     Indication: Pain
     Dosage: UNK
     Route: 048
     Dates: start: 20130124, end: 20130124
  10. IBUPROFEN [Concomitant]
     Active Substance: IBUPROFEN
     Indication: Pain
     Dosage: UNK
     Route: 048
     Dates: start: 20130124, end: 20130124
  11. CEFTRIAXONE SODIUM [Concomitant]
     Active Substance: CEFTRIAXONE SODIUM
     Dosage: UNK
     Route: 050
     Dates: start: 20140404, end: 2014
  12. URSODIOL [Concomitant]
     Active Substance: URSODIOL
     Indication: Hepatitis A
     Dosage: UNK
     Route: 048
  13. URSODIOL [Concomitant]
     Active Substance: URSODIOL
     Indication: Pancreatitis

REACTIONS (7)
  - Respiratory arrest [Fatal]
  - Hepatitis A [Fatal]
  - Drug-induced liver injury [Fatal]
  - Cardiac arrest [Fatal]
  - Pancreatitis [Fatal]
  - Coma [Not Recovered/Not Resolved]
  - Urinary tract infection [Not Recovered/Not Resolved]

NARRATIVE: CASE EVENT DATE: 20140101
